FAERS Safety Report 7478305-X (Version None)
Quarter: 2011Q2

REPORT INFORMATION
  Report Type: 
  Country: None (occurrence: None)
  Receive Date: 20110513
  Receipt Date: 20100601
  Transmission Date: 20111010
  Serious: No
  Sender: FDA-Public Use
  Company Number: US-PFIZER INC-2010068912

PATIENT
  Age: 71 Year
  Sex: Female
  Weight: 66 kg

DRUGS (8)
  1. NEXIUM [Concomitant]
     Indication: GASTROOESOPHAGEAL REFLUX DISEASE
     Dosage: 40 MG, 2X/DAY
     Route: 048
  2. AMERGE [Concomitant]
     Indication: MIGRAINE
     Dosage: 150 MG, UNK
     Route: 048
  3. ZOCOR [Concomitant]
     Indication: BLOOD CHOLESTEROL ABNORMAL
     Dosage: UNK
     Route: 048
  4. ZETIA [Concomitant]
     Indication: BLOOD CHOLESTEROL ABNORMAL
     Dosage: 10 MG, 1X/DAY
     Route: 048
  5. VISTARIL [Suspect]
     Indication: NAUSEA
     Dosage: 100 MG, 4X/DAY
     Route: 048
  6. SEROQUEL [Concomitant]
     Indication: DEPRESSION
     Dosage: 25 MG, (TWO TABLETS OF 25MG DAILY )
     Route: 048
  7. DEMEROL [Concomitant]
     Indication: PAIN
     Dosage: 150 MG, UNK
  8. LITHOBID [Concomitant]
     Indication: DEPRESSION
     Dosage: 2.5 MG, DAILY
     Route: 048

REACTIONS (1)
  - DRUG INEFFECTIVE [None]
